FAERS Safety Report 4299491-9 (Version None)
Quarter: 2004Q1

REPORT INFORMATION
  Report Type: 
  Country: None (occurrence: None)
  Receive Date: 20040219
  Receipt Date: 20040218
  Transmission Date: 20041129
  Serious: Yes (Hospitalization)
  Sender: FDA-Public Use
  Company Number: FR-GLAXOSMITHKLINE-B0323706A

PATIENT
  Age: 41 Year
  Sex: Male

DRUGS (1)
  1. ZYBAN [Suspect]
     Dosage: 150MG SEE DOSAGE TEXT
     Route: 048
     Dates: start: 20040115, end: 20040123

REACTIONS (6)
  - C-REACTIVE PROTEIN INCREASED [None]
  - CHEST PAIN [None]
  - ELECTROCARDIOGRAM ST SEGMENT ELEVATION [None]
  - LUNG INFILTRATION [None]
  - PERICARDITIS [None]
  - PHARYNX DISCOMFORT [None]
